FAERS Safety Report 17139698 (Version 1)
Quarter: 2019Q4

REPORT INFORMATION
  Report Type: Spontaneous
  Country: US (occurrence: US)
  Receive Date: 20191211
  Receipt Date: 20191211
  Transmission Date: 20200122
  Serious: Yes (Life-Threatening, Hospitalization, Congenital Anomaly, Other)
  Sender: FDA-Public Use
  Company Number: US-ABBVIE-19K-163-3190350-00

PATIENT
  Sex: Male

DRUGS (1)
  1. HUMIRA [Suspect]
     Active Substance: ADALIMUMAB
     Indication: EXPOSURE VIA BODY FLUID
     Route: 050

REACTIONS (7)
  - Pulse absent [Recovered/Resolved]
  - Hydronephrosis [Recovered/Resolved]
  - Kidney enlargement [Recovered/Resolved]
  - Renal disorder [Recovered/Resolved]
  - Foetal exposure during pregnancy [Unknown]
  - Paternal exposure during pregnancy [Unknown]
  - Respiratory arrest [Recovered/Resolved]

NARRATIVE: CASE EVENT DATE: 20180323
